FAERS Safety Report 11679417 (Version 4)
Quarter: 2015Q4

REPORT INFORMATION
  Report Type: Spontaneous
  Country: US (occurrence: US)
  Receive Date: 20151027
  Receipt Date: 20151120
  Transmission Date: 20160304
  Serious: No
  Sender: FDA-Public Use
  Company Number: US-ELI_LILLY_AND_COMPANY-US201006002530

PATIENT
  Age: 79 Year
  Sex: Female

DRUGS (4)
  1. FORTEO [Suspect]
     Active Substance: TERIPARATIDE
     Dosage: UNK, UNKNOWN
     Route: 065
     Dates: end: 2011
  2. TRAMADOL. [Concomitant]
     Active Substance: TRAMADOL
  3. COUMADIN [Concomitant]
     Active Substance: WARFARIN SODIUM
  4. FORTEO [Suspect]
     Active Substance: TERIPARATIDE
     Indication: OSTEOPOROSIS
     Dosage: UNK, UNKNOWN
     Route: 065

REACTIONS (7)
  - Head injury [Unknown]
  - Haemorrhage [Unknown]
  - Neuralgia [Unknown]
  - Back pain [Unknown]
  - Drug hypersensitivity [Unknown]
  - Pruritus [Not Recovered/Not Resolved]
  - Dizziness [Unknown]
